FAERS Safety Report 9444747 (Version 2)
Quarter: 2013Q3

REPORT INFORMATION
  Report Type: Spontaneous
  Country: DE (occurrence: DE)
  Receive Date: 20130807
  Receipt Date: 20130830
  Transmission Date: 20140515
  Serious: Yes (Other)
  Sender: FDA-Public Use
  Company Number: PHHY2013DE084387

PATIENT
  Age: 60 Year
  Sex: Male

DRUGS (2)
  1. METHYLPHENIDATE [Suspect]
     Indication: ATTENTION DEFICIT/HYPERACTIVITY DISORDER
     Dosage: UNK UKN, UNK
  2. METHYLPHENIDATE [Suspect]
     Indication: OFF LABEL USE
     Dosage: 80 MG, DAILY

REACTIONS (3)
  - Optic ischaemic neuropathy [Recovered/Resolved]
  - Mental disorder [Unknown]
  - Overdose [Unknown]
